FAERS Safety Report 11611925 (Version 3)
Quarter: 2015Q4

REPORT INFORMATION
  Report Type: Report from Study
  Country: BE (occurrence: BE)
  Receive Date: 20151008
  Receipt Date: 20151105
  Transmission Date: 20160304
  Serious: Yes (Hospitalization)
  Sender: FDA-Public Use
  Company Number: BE-ABBVIE-15P-013-1438418-00

PATIENT
  Sex: Male

DRUGS (12)
  1. DUODOPA [Suspect]
     Active Substance: CARBIDOPA\LEVODOPA
     Dosage: AM = 10 ML, CD = 3.6 ML/H DURING 16H, ED = 2.5 ML
     Route: 050
     Dates: start: 20111019, end: 20111022
  2. DUODOPA [Suspect]
     Active Substance: CARBIDOPA\LEVODOPA
     Dosage: AM=10 ML, CD=3.2 ML/H DURING 16H, ED=2 ML
     Route: 050
     Dates: start: 20150904
  3. DUODOPA [Suspect]
     Active Substance: CARBIDOPA\LEVODOPA
     Dosage: AM=10ML; CD=3.2ML/H DURING 16HRS; ED=2ML
     Route: 050
     Dates: end: 20151029
  4. DUODOPA [Suspect]
     Active Substance: CARBIDOPA\LEVODOPA
     Dosage: DOSE CONTINUOUSLY MONITORED AND ADAPTED
     Route: 050
     Dates: start: 20111022, end: 20141121
  5. ASPIRIN. [Concomitant]
     Active Substance: ASPIRIN
     Indication: PRODUCT USED FOR UNKNOWN INDICATION
  6. LORMETAZEPAM [Concomitant]
     Active Substance: LORMETAZEPAM
     Indication: PRODUCT USED FOR UNKNOWN INDICATION
  7. CORUNO [Concomitant]
     Active Substance: MOLSIDOMINE
     Indication: PRODUCT USED FOR UNKNOWN INDICATION
  8. TRAZODONE [Concomitant]
     Active Substance: TRAZODONE HYDROCHLORIDE
     Indication: PRODUCT USED FOR UNKNOWN INDICATION
  9. DUODOPA [Suspect]
     Active Substance: CARBIDOPA\LEVODOPA
     Dosage: AM=10ML; CD=3.3ML/HR DURING 16HRS; ED=2ML
     Route: 050
     Dates: start: 20151029
  10. DUODOPA [Suspect]
     Active Substance: CARBIDOPA\LEVODOPA
     Indication: PARKINSON^S DISEASE
     Dosage: UNKNOWN
     Route: 050
     Dates: start: 20111017, end: 20111019
  11. DUODOPA [Suspect]
     Active Substance: CARBIDOPA\LEVODOPA
     Dosage: AM=10 ML, CD=3.2 ML/H DURING 16H, ED=2 ML
     Route: 050
     Dates: start: 20141121, end: 20150904
  12. PROLOPA [Concomitant]
     Active Substance: BENSERAZIDE\LEVODOPA
     Indication: PARKINSON^S DISEASE
     Dosage: FORM STRENGTH: 200MG/50MG (EMERGENCY MEDICATION: 5 IN 1 DAY)

REACTIONS (4)
  - Freezing phenomenon [Unknown]
  - Device issue [Unknown]
  - Device dislocation [Recovered/Resolved]
  - Stoma site infection [Unknown]
